FAERS Safety Report 8321172-2 (Version None)
Quarter: 2012Q2

REPORT INFORMATION
  Report Type: 
  Country: None (occurrence: None)
  Receive Date: 20120430
  Receipt Date: 20120420
  Transmission Date: 20120825
  Serious: Yes (Other)
  Sender: FDA-Public Use
  Company Number: CA-JNJFOC-20120111365

PATIENT
  Sex: Male
  Weight: 63.5 kg

DRUGS (3)
  1. REMICADE [Suspect]
     Route: 042
     Dates: end: 20111129
  2. REMICADE [Suspect]
     Indication: COLITIS ULCERATIVE
     Route: 042
     Dates: start: 20080722
  3. REMICADE [Suspect]
     Route: 042
     Dates: start: 20080501

REACTIONS (2)
  - PROCEDURAL COMPLICATION [None]
  - INTESTINAL RESECTION [None]
